FAERS Safety Report 6913722-5 (Version None)
Quarter: 2010Q3

REPORT INFORMATION
  Report Type: 
  Country: None (occurrence: None)
  Receive Date: 20100809
  Receipt Date: 20100729
  Transmission Date: 20110219
  Serious: Yes (Other)
  Sender: FDA-Public Use
  Company Number: US-JNJFOC-20100800980

PATIENT
  Age: 74 Year
  Sex: Male

DRUGS (8)
  1. KETOCONOZOLE [Suspect]
     Indication: PROSTATE CANCER
     Route: 065
  2. NILUTAMIDE [Concomitant]
     Indication: PROSTATE CANCER
     Route: 065
  3. LEUPROLIDE ACETATE [Concomitant]
     Indication: PROSTATE CANCER
     Route: 065
  4. BICALUTAMIDE [Concomitant]
     Indication: PROSTATE CANCER
     Route: 065
  5. FINASTERIDE [Concomitant]
     Indication: PROSTATE CANCER
     Route: 065
  6. TRIPTORELIN [Concomitant]
     Indication: PROSTATE CANCER
     Route: 065
  7. THALIDOMIDE [Concomitant]
     Indication: PROSTATE CANCER
     Route: 065
  8. CYCLOPHOSPHAMIDE [Concomitant]
     Indication: PROSTATE CANCER
     Route: 065

REACTIONS (3)
  - DISEASE PROGRESSION [None]
  - DRUG INEFFECTIVE [None]
  - OFF LABEL USE [None]
